FAERS Safety Report 24570503 (Version 1)
Quarter: 2024Q4

REPORT INFORMATION
  Report Type: Spontaneous
  Country: US (occurrence: US)
  Receive Date: 20241031
  Receipt Date: 20241031
  Transmission Date: 20250115
  Serious: No
  Sender: CALLIDITAS THERAPEUTICS AB
  Company Number: US-Calliditas-2024CAL02392

PATIENT
  Age: 29 Year
  Sex: Male

DRUGS (10)
  1. TARPEYO [Suspect]
     Active Substance: BUDESONIDE
     Indication: IgA nephropathy
     Route: 048
     Dates: start: 202406
  2. AMLODIPINE [Concomitant]
     Active Substance: AMLODIPINE BESYLATE
  3. CALCIUM CARBONATE [Concomitant]
     Active Substance: CALCIUM CARBONATE
  4. CHLORTHALIDONE [Concomitant]
     Active Substance: CHLORTHALIDONE
  5. FARXIGA [Concomitant]
     Active Substance: DAPAGLIFLOZIN PROPANEDIOL
  6. INSPRA [Concomitant]
     Active Substance: EPLERENONE
  7. DOCONEXENT\ICOSAPENT\TOCOPHEROL [Concomitant]
     Active Substance: DOCONEXENT\ICOSAPENT\TOCOPHEROL
  8. FILSPARI [Concomitant]
     Active Substance: SPARSENTAN
  9. BACTRIM [Concomitant]
     Active Substance: SULFAMETHOXAZOLE\TRIMETHOPRIM
  10. TACROLIMUS [Concomitant]
     Active Substance: TACROLIMUS

REACTIONS (4)
  - Withdrawal syndrome [Recovered/Resolved]
  - Rash [Recovered/Resolved]
  - Skin discolouration [Not Recovered/Not Resolved]
  - Product dose omission issue [Unknown]
